FAERS Safety Report 7644388-7 (Version None)
Quarter: 2011Q3

REPORT INFORMATION
  Report Type: 
  Country: None (occurrence: None)
  Receive Date: 20110729
  Receipt Date: 20110727
  Transmission Date: 20111222
  Serious: Yes (Other)
  Sender: FDA-Public Use
  Company Number: NL-ROCHE-689946

PATIENT
  Sex: Male
  Weight: 70 kg

DRUGS (6)
  1. METHADONE HYDROCHLORIDE [Suspect]
     Dosage: FREQUENCY:1X20 MG
     Route: 065
  2. LISINOPRIL [Concomitant]
     Indication: HYPERTENSION
     Dates: start: 20091201, end: 20100219
  3. METFORMIN HCL [Suspect]
     Dosage: DOSE: 3X 850 MG
     Route: 065
  4. RIBAVIRIN [Suspect]
     Dosage: LOWERED DOSAGE
     Route: 048
  5. RIBAVIRIN [Suspect]
     Indication: HEPATITIS C
     Route: 048
     Dates: start: 20100209
  6. PEGINTERFERON ALFA-2A [Suspect]
     Indication: HEPATITIS C
     Route: 058
     Dates: start: 20100209

REACTIONS (1)
  - SYNCOPE [None]
